FAERS Safety Report 8095243-2 (Version None)
Quarter: 2012Q1

REPORT INFORMATION
  Report Type: 
  Country: None (occurrence: None)
  Receive Date: 20120129
  Receipt Date: 20111229
  Transmission Date: 20120608
  Serious: No
  Sender: FDA-Public Use
  Company Number: US-ABBOTT-11P-163-0887809-00

PATIENT
  Age: 46 Year
  Sex: Female

DRUGS (8)
  1. TRAMADOL HCL [Concomitant]
     Indication: PAIN
  2. HUMIRA [Suspect]
     Indication: RHEUMATOID ARTHRITIS
     Dates: start: 20111030, end: 20111211
  3. PREDNISONE TAB [Concomitant]
     Indication: JOINT SWELLING
     Dosage: 15-20 MG
  4. METHOTREXATE [Concomitant]
     Indication: PRODUCT USED FOR UNKNOWN INDICATION
     Dosage: 8 TABLETS WEEKLY
  5. TRAMADOL HCL [Concomitant]
     Indication: INSOMNIA
  6. NAPROXEN (ALEVE) [Concomitant]
     Indication: PAIN
  7. VISTARIL [Concomitant]
     Indication: ANXIETY
  8. PREDNISONE TAB [Concomitant]
     Indication: ARTHRALGIA

REACTIONS (7)
  - INJECTION SITE PRURITUS [None]
  - ARTHRALGIA [None]
  - DRUG DOSE OMISSION [None]
  - INJECTION SITE REACTION [None]
  - INJECTION SITE ERYTHEMA [None]
  - JOINT SWELLING [None]
  - HOT FLUSH [None]
